FAERS Safety Report 8583176-4 (Version None)
Quarter: 2012Q3

REPORT INFORMATION
  Report Type: 
  Country: None (occurrence: None)
  Receive Date: 20120809
  Receipt Date: 20120731
  Transmission Date: 20120928
  Serious: Yes (Other)
  Sender: FDA-Public Use
  Company Number: NL-ABBOTT-12P-114-0931098-00

PATIENT
  Age: 52 Year
  Sex: Male

DRUGS (5)
  1. TAMSULOSIN HYDROCHLORIDE [Concomitant]
     Indication: PRODUCT USED FOR UNKNOWN INDICATION
  2. DEPAKENE [Suspect]
     Indication: EPILEPSY
     Route: 048
     Dates: start: 20110701
  3. DEPAKENE [Suspect]
     Route: 048
  4. AZARGA [Concomitant]
     Indication: PRODUCT USED FOR UNKNOWN INDICATION
  5. CLOBAZAM [Suspect]
     Indication: EPILEPSY
     Route: 048
     Dates: end: 20110701

REACTIONS (7)
  - DISTURBANCE IN ATTENTION [None]
  - TREMOR [None]
  - EPILEPSY [None]
  - DYSPHEMIA [None]
  - DRUG INEFFECTIVE [None]
  - MEMORY IMPAIRMENT [None]
  - SOMNOLENCE [None]
